FAERS Safety Report 19476787 (Version 1)
Quarter: 2021Q2

REPORT INFORMATION
  Report Type: Spontaneous
  Country: US (occurrence: US)
  Receive Date: 20210629
  Receipt Date: 20210629
  Transmission Date: 20210717
  Serious: Yes (Hospitalization)
  Sender: FDA-Public Use
  Company Number: None

PATIENT
  Age: 62 Year
  Sex: Male

DRUGS (1)
  1. TEMODAR [Suspect]
     Active Substance: TEMOZOLOMIDE
     Dosage: OTHER
     Route: 048
     Dates: start: 20210113

REACTIONS (5)
  - Hypophagia [None]
  - Dehydration [None]
  - Weight decreased [None]
  - Therapy change [None]
  - Blood glucose decreased [None]

NARRATIVE: CASE EVENT DATE: 20210517
